FAERS Safety Report 8790370 (Version 2)
Quarter: 2012Q4

REPORT INFORMATION
  Report Type: 
  Country: IE (occurrence: IE)
  Receive Date: 20120917
  Receipt Date: 20121019
  Transmission Date: 20130627
  Serious: Yes (Other)
  Sender: FDA-Public Use
  Company Number: IE-JNJFOC-20120904357

PATIENT
  Age: 34 Year
  Sex: Male
  Weight: 95 kg

DRUGS (7)
  1. REMICADE [Suspect]
     Indication: COLITIS ULCERATIVE
     Dosage: 4th cycle of infusion
     Route: 042
     Dates: start: 20120815, end: 20120815
  2. REMICADE [Suspect]
     Indication: COLITIS ULCERATIVE
     Route: 042
     Dates: start: 20120511
  3. REMICADE [Suspect]
     Indication: CROHN^S DISEASE
     Dosage: 4th cycle of infusion
     Route: 042
     Dates: start: 20120815, end: 20120815
  4. REMICADE [Suspect]
     Indication: CROHN^S DISEASE
     Route: 042
     Dates: start: 20120511
  5. ASACOLON [Concomitant]
     Indication: COLITIS ULCERATIVE
     Route: 065
  6. ASACOLON [Concomitant]
     Indication: CROHN^S DISEASE
     Route: 065
  7. PROTIUM [Concomitant]
     Indication: INFLAMMATORY BOWEL DISEASE
     Route: 065

REACTIONS (6)
  - Rash erythematous [Recovered/Resolved]
  - Chest pain [Recovered/Resolved]
  - Hyperhidrosis [Recovered/Resolved]
  - Tremor [Recovered/Resolved]
  - Infusion related reaction [Recovered/Resolved]
  - Malaise [Unknown]
